FAERS Safety Report 13560650 (Version 1)
Quarter: 2017Q2

REPORT INFORMATION
  Report Type: Spontaneous
  Country: US (occurrence: US)
  Receive Date: 20170518
  Receipt Date: 20170518
  Transmission Date: 20170830
  Serious: No
  Sender: FDA-Public Use
  Company Number: US-ROCHE-1070736

PATIENT
  Sex: Female

DRUGS (2)
  1. ANAPROX [Suspect]
     Active Substance: NAPROXEN SODIUM
     Indication: MIGRAINE
     Route: 065
  2. NAPROXEN. [Suspect]
     Active Substance: NAPROXEN
     Indication: MIGRAINE
     Route: 048

REACTIONS (1)
  - Drug ineffective [Unknown]
